FAERS Safety Report 7126138-6 (Version None)
Quarter: 2010Q4

REPORT INFORMATION
  Report Type: 
  Country: None (occurrence: None)
  Receive Date: 20101129
  Receipt Date: 20101118
  Transmission Date: 20110411
  Serious: Yes (Other)
  Sender: FDA-Public Use
  Company Number: US-GENZYME-CERZ-1001659

PATIENT
  Sex: Male

DRUGS (1)
  1. CEREZYME [Suspect]
     Indication: GAUCHER'S DISEASE
     Dosage: 60 U/KG, Q2W
     Route: 042
     Dates: start: 20091013

REACTIONS (9)
  - ARTHROPATHY [None]
  - BONE INFARCTION [None]
  - ECCHYMOSIS [None]
  - HAEMOGLOBIN DECREASED [None]
  - HEPATOSPLENOMEGALY [None]
  - HIP DEFORMITY [None]
  - PLATELET COUNT DECREASED [None]
  - SPINAL DISORDER [None]
  - THERAPEUTIC RESPONSE DECREASED [None]
